FAERS Safety Report 7380869-1 (Version None)
Quarter: 2011Q1

REPORT INFORMATION
  Report Type: 
  Country: None (occurrence: None)
  Receive Date: 20110329
  Receipt Date: 20110315
  Transmission Date: 20110831
  Serious: Yes (Other)
  Sender: FDA-Public Use
  Company Number: PHHY2011US15653

PATIENT
  Sex: Female

DRUGS (4)
  1. MAGNESIUM [Concomitant]
     Indication: MIGRAINE
     Dosage: UNK
     Dates: start: 20100101
  2. GILENYA [Suspect]
     Indication: MULTIPLE SCLEROSIS
     Dosage: 0.5 MG, QD
     Route: 048
     Dates: start: 20110131
  3. PROVIGIL [Concomitant]
     Indication: FATIGUE
     Dosage: 1 DF, BID
     Dates: start: 20080101
  4. BUPROPION HYDROCHLORIDE [Concomitant]
     Indication: DEPRESSION
     Dosage: 1 DF, DAILY
     Dates: start: 20090101

REACTIONS (3)
  - VISION BLURRED [None]
  - CYSTITIS [None]
  - VISUAL ACUITY REDUCED [None]
